FAERS Safety Report 19479627 (Version 1)
Quarter: 2021Q2

REPORT INFORMATION
  Report Type: Spontaneous
  Country: US (occurrence: US)
  Receive Date: 20210630
  Receipt Date: 20210630
  Transmission Date: 20210717
  Serious: No
  Sender: FDA-Public Use
  Company Number: US-BAUSCH-BL-2021-017560

PATIENT
  Sex: Female

DRUGS (2)
  1. ALAWAY [Suspect]
     Active Substance: KETOTIFEN FUMARATE
     Indication: EYE PRURITUS
     Dosage: 1 GTT, AS NEEDED?MANY YEARS OFF AND ON
     Route: 047
  2. ALAWAY PRESERVATIVE FREE [Suspect]
     Active Substance: KETOTIFEN FUMARATE
     Indication: EYE PRURITUS
     Dosage: 1 DROP IN BOTH EYES AS NEEDED TWICE DAILY
     Route: 047
     Dates: start: 202105, end: 20210513

REACTIONS (2)
  - Clumsiness [Unknown]
  - Drug ineffective [Unknown]

NARRATIVE: CASE EVENT DATE: 202105
